FAERS Safety Report 9295635 (Version 1)
Quarter: 2013Q2

REPORT INFORMATION
  Report Type: Spontaneous
  Country: US (occurrence: None)
  Receive Date: 20130514
  Receipt Date: 20130514
  Transmission Date: 20140414
  Serious: Yes (Other)
  Sender: FDA-Public Use
  Company Number: FK201301427

PATIENT
  Age: 56 Year
  Sex: Female

DRUGS (4)
  1. LIDOCAINE (MANUFACTURER UNKNOWN) (LIDOCAINE) (LIDOCAINE) [Suspect]
     Indication: INDUCTION AND MAINTENANCE OF ANAESTHESIA
  2. FENTANYL (FENTANYL) (FENTANYL) [Concomitant]
  3. MIDAZOLAM (MIDAZOLAM) [Concomitant]
  4. EPINEPHRINE (EPINEPHRINE) (EPINEPHRINE) [Concomitant]

REACTIONS (2)
  - Monoplegia [None]
  - Hypotension [None]
